FAERS Safety Report 25206270 (Version 1)
Quarter: 2025Q2

REPORT INFORMATION
  Report Type: Spontaneous
  Country: CN (occurrence: CN)
  Receive Date: 20250417
  Receipt Date: 20250417
  Transmission Date: 20250716
  Serious: Yes (Hospitalization, Other)
  Sender: BAXTER
  Company Number: None

PATIENT
  Age: 5 Year
  Sex: Male
  Weight: 15 kg

DRUGS (4)
  1. CYCLOPHOSPHAMIDE [Suspect]
     Active Substance: CYCLOPHOSPHAMIDE
     Indication: Burkitt^s lymphoma
     Dosage: 0.300000 G, BID, INJECTION IN PUMP
     Route: 065
     Dates: start: 20250315, end: 20250316
  2. SODIUM CHLORIDE [Suspect]
     Active Substance: SODIUM CHLORIDE
     Dosage: 0.9% SODIUM CHLORIDE INJECTION 75ML + 0.3G CYCLOPHOSPHAMIDE, PUMPED, ONCE EVERY 12 HOURS
     Route: 065
     Dates: start: 20250315, end: 20250316
  3. SODIUM CHLORIDE [Suspect]
     Active Substance: SODIUM CHLORIDE
     Dosage: 100ML 0.9% SODIUM CHLORIDE INJECTION + 18.2MG DAUNORUBICIN INTRAVENOUS DRIP ONCE A DAY
     Route: 041
     Dates: start: 20250315, end: 20250316
  4. DAUNORUBICIN HYDROCHLORIDE [Suspect]
     Active Substance: DAUNORUBICIN HYDROCHLORIDE
     Indication: Burkitt^s lymphoma
     Dosage: 18.200000 MG, QD
     Route: 041
     Dates: start: 20250315, end: 20250316

REACTIONS (2)
  - White blood cell count decreased [Recovering/Resolving]
  - Myelosuppression [Recovering/Resolving]

NARRATIVE: CASE EVENT DATE: 20250327
